FAERS Safety Report 5701897-5 (Version None)
Quarter: 2008Q2

REPORT INFORMATION
  Report Type: 
  Country: None (occurrence: None)
  Receive Date: 20080411
  Receipt Date: 20080402
  Transmission Date: 20081010
  Serious: Yes (Hospitalization)
  Sender: FDA-Public Use
  Company Number: PHHY2008BR04807

PATIENT
  Age: 35 Year
  Sex: Female

DRUGS (1)
  1. FORASEQ [Suspect]
     Dosage: 12/400 MCG

REACTIONS (2)
  - DYSPHONIA [None]
  - INFLUENZA [None]
